FAERS Safety Report 10405096 (Version 4)
Quarter: 2015Q4

REPORT INFORMATION
  Report Type: Report from Study
  Country: US (occurrence: US)
  Receive Date: 20140825
  Receipt Date: 20151012
  Transmission Date: 20160304
  Serious: Yes (Hospitalization, Other)
  Sender: FDA-Public Use
  Company Number: US-ALEXION-A201403132

PATIENT

DRUGS (1)
  1. SOLIRIS [Suspect]
     Active Substance: ECULIZUMAB
     Indication: PAROXYSMAL NOCTURNAL HAEMOGLOBINURIA
     Dosage: UNK
     Route: 042

REACTIONS (20)
  - Abdominal pain [Unknown]
  - Laryngitis [Unknown]
  - Swelling [Unknown]
  - Peripheral swelling [Unknown]
  - Blister [Not Recovered/Not Resolved]
  - Diarrhoea [Unknown]
  - Neoplasm malignant [Not Recovered/Not Resolved]
  - Unevaluable event [Unknown]
  - White blood cell count increased [Not Recovered/Not Resolved]
  - Blister infected [Unknown]
  - Fatigue [Not Recovered/Not Resolved]
  - Gastric disorder [Unknown]
  - Pain [Unknown]
  - Vaginal haemorrhage [Unknown]
  - Vaginal haemorrhage [Not Recovered/Not Resolved]
  - Thrombosis [Unknown]
  - Nasopharyngitis [Unknown]
  - Asthenia [Unknown]
  - Abdominal distension [Unknown]
  - Blood pressure increased [Unknown]

NARRATIVE: CASE EVENT DATE: 20140813
